FAERS Safety Report 12094455 (Version 2)
Quarter: 2016Q1

REPORT INFORMATION
  Report Type: Spontaneous
  Country: FR (occurrence: FR)
  Receive Date: 20160219
  Receipt Date: 20160318
  Transmission Date: 20160526
  Serious: Yes (Death, Hospitalization)
  Sender: FDA-Public Use
  Company Number: FR-JNJFOC-20160216273

PATIENT
  Age: 84 Year
  Sex: Male
  Weight: 68 kg

DRUGS (9)
  1. IMBRUVICA [Suspect]
     Active Substance: IBRUTINIB
     Indication: CHRONIC LYMPHOCYTIC LEUKAEMIA
     Route: 048
     Dates: start: 20150811, end: 20160112
  2. ORELOX [Concomitant]
     Active Substance: CEFPODOXIME
     Indication: RESPIRATORY TRACT INFECTION
     Dates: start: 20151228, end: 20160112
  3. TARDYFERON [Concomitant]
     Active Substance: FERROUS SULFATE\FOLIC ACID
  4. PANTOPRAZOL [Concomitant]
     Active Substance: PANTOPRAZOLE SODIUM
  5. LASILIX [Concomitant]
     Active Substance: FUROSEMIDE
  6. SIFROL [Concomitant]
     Active Substance: PRAMIPEXOLE
     Indication: PARKINSON^S DISEASE
  7. ZELITREX [Concomitant]
     Active Substance: VALACYCLOVIR HYDROCHLORIDE
  8. BI-PRETERAX [Concomitant]
  9. SINEMET [Concomitant]
     Active Substance: CARBIDOPA\LEVODOPA
     Indication: PARKINSON^S DISEASE

REACTIONS (3)
  - Death [Fatal]
  - Erysipelas [Fatal]
  - Respiratory tract congestion [Fatal]

NARRATIVE: CASE EVENT DATE: 20151120
